FAERS Safety Report 19002830 (Version 1)
Quarter: 2021Q1

REPORT INFORMATION
  Report Type: Spontaneous
  Country: US (occurrence: US)
  Receive Date: 20210312
  Receipt Date: 20210312
  Transmission Date: 20210420
  Serious: Yes (Hospitalization)
  Sender: FDA-Public Use
  Company Number: US-FRESENIUS KABI-FK202102339

PATIENT
  Age: 72 Year
  Sex: Male
  Weight: 62 kg

DRUGS (4)
  1. FOLINIC ACID [Suspect]
     Active Substance: LEUCOVORIN
     Indication: ADENOCARCINOMA PANCREAS
     Dosage: NAL?IRINOTECAN?680 MG IV IN 100ML, D5W OVER 30 MIN
     Route: 042
     Dates: start: 20201209, end: 20210120
  2. FLUOROURACIL (MANUFACTURER UNKNOWN) [Suspect]
     Active Substance: FLUOROURACIL
     Indication: ADENOCARCINOMA PANCREAS
     Route: 065
     Dates: start: 20201209, end: 20210120
  3. IRINOTECAN [Suspect]
     Active Substance: IRINOTECAN
     Indication: ADENOCARCINOMA PANCREAS
     Dosage: NAL?IRINOTECAN?5MG IV IN 500ML, D5W OVER 90 MIN
     Route: 042
     Dates: start: 20201209, end: 20210120
  4. OXALIPLATIN. [Suspect]
     Active Substance: OXALIPLATIN
     Indication: ADENOCARCINOMA PANCREAS
     Dosage: NAL?IRINOTECAN?102MG IV IN 500ML, D5W OVER 2 HRS
     Route: 042
     Dates: start: 20201209, end: 20210120

REACTIONS (10)
  - Dehydration [Unknown]
  - Diarrhoea [Recovered/Resolved with Sequelae]
  - Fall [Unknown]
  - Head injury [Unknown]
  - Pain [Unknown]
  - Neutropenia [Unknown]
  - Pulmonary embolism [Unknown]
  - Vomiting [Recovering/Resolving]
  - Deep vein thrombosis [Unknown]
  - Nausea [Recovering/Resolving]

NARRATIVE: CASE EVENT DATE: 20210129
